FAERS Safety Report 17717269 (Version 1)
Quarter: 2020Q2

REPORT INFORMATION
  Report Type: Spontaneous
  Country: US (occurrence: US)
  Receive Date: 20200428
  Receipt Date: 20200428
  Transmission Date: 20200714
  Serious: No
  Sender: FDA-Public Use
  Company Number: US-PFIZER INC-2020166353

PATIENT
  Age: 29 Year
  Sex: Male
  Weight: 88.45 kg

DRUGS (3)
  1. VIAGRA [Suspect]
     Active Substance: SILDENAFIL CITRATE
     Indication: ERECTILE DYSFUNCTION
     Dosage: 300 MG, UNK
  2. MOTRIN [Suspect]
     Active Substance: IBUPROFEN
     Dosage: UNK
  3. TAMSULOSIN [Interacting]
     Active Substance: TAMSULOSIN
     Indication: PROSTATOMEGALY
     Dosage: 1.6 MG (0.8 MG, I TOOK TWO TODAY)

REACTIONS (6)
  - Penis disorder [Unknown]
  - Overdose [Unknown]
  - Ejaculation disorder [Unknown]
  - Dysuria [Unknown]
  - Erection increased [Unknown]
  - Drug interaction [Unknown]
